FAERS Safety Report 21308669 (Version 2)
Quarter: 2022Q4

REPORT INFORMATION
  Report Type: Report from Study
  Country: US (occurrence: US)
  Receive Date: 20220908
  Receipt Date: 20221222
  Transmission Date: 20230112
  Serious: Yes (Other)
  Sender: FDA-Public Use
  Company Number: US-BRISTOL-MYERS SQUIBB COMPANY-2022-080457

PATIENT
  Age: 42 Year
  Sex: Female

DRUGS (6)
  1. CAMZYOS [Suspect]
     Active Substance: MAVACAMTEN
     Indication: Hypertrophic cardiomyopathy
     Route: 048
     Dates: start: 202207, end: 20220725
  2. CAMZYOS [Suspect]
     Active Substance: MAVACAMTEN
     Dosage: 2.5 MG STARTED ON 26-JUL-2022
     Route: 048
     Dates: end: 20220823
  3. CAMZYOS [Suspect]
     Active Substance: MAVACAMTEN
     Route: 048
     Dates: start: 202211
  4. METOPROLOL SUCCINATE [Interacting]
     Active Substance: METOPROLOL SUCCINATE
     Indication: Palpitations
  5. ATORVASTATIN [Concomitant]
     Active Substance: ATORVASTATIN
     Indication: Hypersensitivity pneumonitis
     Dosage: ONGOING
     Route: 048
     Dates: start: 20220522
  6. GABAPENTIN [Concomitant]
     Active Substance: GABAPENTIN
     Indication: Implantable defibrillator insertion
     Dosage: TID
     Route: 048
     Dates: start: 20220503, end: 20220723

REACTIONS (2)
  - Palpitations [Recovering/Resolving]
  - Drug interaction [Unknown]

NARRATIVE: CASE EVENT DATE: 20220715
